FAERS Safety Report 5151325-6 (Version None)
Quarter: 2006Q4

REPORT INFORMATION
  Report Type: 
  Country: None (occurrence: None)
  Receive Date: 20061115
  Receipt Date: 20061003
  Transmission Date: 20070319
  Serious: Yes (Life-Threatening, Hospitalization)
  Sender: FDA-Public Use
  Company Number: JP-JPN-A200603997

PATIENT
  Age: 45 Year
  Sex: Female
  Weight: 63 kg

DRUGS (26)
  1. ARTIST [Suspect]
     Indication: HYPERTENSION
     Dosage: 10MG PER DAY
     Route: 048
     Dates: start: 20060724, end: 20061001
  2. ARTIST [Suspect]
     Dosage: 10MG PER DAY
     Route: 048
     Dates: start: 20061017, end: 20061023
  3. ARTIST [Suspect]
     Dosage: 10MG TWICE PER DAY
     Route: 048
     Dates: start: 20061024
  4. ALLOPURINOL [Suspect]
     Indication: HYPERURICAEMIA
     Dosage: 100MG PER DAY
     Route: 048
     Dates: start: 20060801, end: 20060830
  5. ALLOPURINOL [Suspect]
     Dosage: 100MG PER DAY
     Route: 048
     Dates: start: 20060919, end: 20061001
  6. ALLOZYM [Suspect]
     Indication: HYPERURICAEMIA
     Dosage: 100MG PER DAY
     Route: 048
     Dates: start: 20060831, end: 20060918
  7. ADALAT [Suspect]
     Indication: HYPERTENSION
     Route: 048
     Dates: start: 20060720, end: 20061023
  8. LASIX [Suspect]
     Indication: OEDEMA
     Dosage: 20MG PER DAY
     Route: 048
     Dates: start: 20060724, end: 20060830
  9. LASIX [Suspect]
     Dosage: 20MG PER DAY
     Route: 048
     Dates: start: 20060919, end: 20061003
  10. FUROSEMIDE [Suspect]
     Indication: OEDEMA
     Dosage: 40MG PER DAY
     Route: 048
     Dates: start: 20060831, end: 20060918
  11. CARDENALIN [Suspect]
     Indication: HYPERTENSION
     Route: 048
     Dates: start: 20060724, end: 20060830
  12. CARDENALIN [Suspect]
     Dosage: 4MG PER DAY
     Route: 048
     Dates: start: 20060919, end: 20061003
  13. CARBADOGEN [Suspect]
     Indication: HYPERTENSION
     Dosage: 4MG PER DAY
     Route: 048
     Dates: start: 20060831, end: 20060918
  14. CORINAEL [Suspect]
     Indication: HYPERTENSION
     Dosage: 10MG THREE TIMES PER DAY
     Route: 048
     Dates: start: 20060831, end: 20060918
  15. DIOVAN [Suspect]
     Indication: HYPERTENSION
     Route: 048
     Dates: start: 20060809, end: 20061003
  16. DIOVAN [Suspect]
     Dosage: 80MG PER DAY
     Route: 048
     Dates: start: 20061024
  17. ARGAMATE [Concomitant]
     Indication: HYPERKALAEMIA
     Dosage: 50G PER DAY
     Route: 048
     Dates: start: 20060720
  18. KALIMATE [Concomitant]
     Indication: HYPERKALAEMIA
     Route: 048
     Dates: start: 20060818
  19. FERO-GRADUMET [Concomitant]
     Indication: IRON DEFICIENCY ANAEMIA
     Route: 048
     Dates: start: 20060814, end: 20060918
  20. JUSO-JO [Concomitant]
     Indication: METABOLIC ACIDOSIS
     Route: 048
     Dates: start: 20060814
  21. DIART [Concomitant]
     Indication: OEDEMA
     Dosage: 120MG PER DAY
     Route: 048
     Dates: start: 20061004, end: 20061019
  22. AVELOX [Concomitant]
     Indication: INFECTION
     Dosage: 400MG PER DAY
     Route: 048
     Dates: start: 20061012, end: 20061017
  23. MEROPEN [Concomitant]
     Indication: INFECTION
     Dosage: .5G PER DAY
     Route: 042
     Dates: start: 20060930, end: 20061011
  24. EPOGEN [Concomitant]
     Indication: NEPHROGENIC ANAEMIA
     Route: 058
     Dates: start: 20060721
  25. ESPO [Concomitant]
     Indication: NEPHROGENIC ANAEMIA
     Dosage: 12IU PER DAY
     Route: 058
     Dates: start: 20060831, end: 20060831
  26. ESPO [Concomitant]
     Dosage: 12IU PER DAY
     Route: 058
     Dates: start: 20060926, end: 20060926

REACTIONS (12)
  - AGRANULOCYTOSIS [None]
  - BONE MARROW FAILURE [None]
  - DRUG HYPERSENSITIVITY [None]
  - GRANULOCYTOPENIA [None]
  - HEPATIC FUNCTION ABNORMAL [None]
  - HOT FLUSH [None]
  - INFECTION [None]
  - NEUTROPENIA [None]
  - OEDEMA [None]
  - PRURITUS GENERALISED [None]
  - PYREXIA [None]
  - WHITE BLOOD CELL COUNT INCREASED [None]
